FAERS Safety Report 6921348-2 (Version None)
Quarter: 2010Q3

REPORT INFORMATION
  Report Type: 
  Country: None (occurrence: None)
  Receive Date: 20100812
  Receipt Date: 20100730
  Transmission Date: 20110219
  Serious: Yes (Hospitalization, Other)
  Sender: FDA-Public Use
  Company Number: US-ELI_LILLY_AND_COMPANY-US201007001816

PATIENT
  Age: 55 Year
  Sex: Female

DRUGS (1)
  1. ZYPREXA [Suspect]
     Dosage: 1 D/F, UNKNOWN
     Route: 048

REACTIONS (12)
  - AMNESIA [None]
  - AREFLEXIA [None]
  - ARTHRALGIA [None]
  - BLOOD CHOLESTEROL INCREASED [None]
  - DEAFNESS [None]
  - DIZZINESS [None]
  - HOSPITALISATION [None]
  - INCREASED APPETITE [None]
  - MUSCLE RIGIDITY [None]
  - SOMNOLENCE [None]
  - VISUAL IMPAIRMENT [None]
  - WEIGHT INCREASED [None]
